FAERS Safety Report 25034749 (Version 2)
Quarter: 2025Q3

REPORT INFORMATION
  Report Type: Spontaneous
  Country: EU (occurrence: EU)
  Receive Date: 20250304
  Receipt Date: 20250809
  Transmission Date: 20251021
  Serious: Yes (Hospitalization)
  Sender: ALEXION PHARMACEUTICALS
  Company Number: None

PATIENT
  Age: 56 Year
  Sex: Male
  Weight: 97.7 kg

DRUGS (17)
  1. DAPAGLIFLOZIN [Suspect]
     Active Substance: DAPAGLIFLOZIN
     Indication: Type 2 diabetes mellitus
     Dosage: 1X PER DAG 1
     Dates: start: 20240219, end: 20250214
  2. AMIODARONE [Concomitant]
     Active Substance: AMIODARONE
     Dosage: 200 MG, ORAAL, 1DD
     Dates: start: 20250102
  3. BUMETANIDE [Concomitant]
     Active Substance: BUMETANIDE
     Dosage: 3 MG, ORAAL, 2DD
  4. CARVEDILOL [Concomitant]
     Active Substance: CARVEDILOL
     Dosage: 3,125 MG, ORAAL, 2DD
  5. CLOPIDOGREL [Concomitant]
     Active Substance: CLOPIDOGREL BISULFATE
     Dosage: 75 MG, ORAAL, 1DD
  6. EDOXABAN [Concomitant]
     Active Substance: EDOXABAN
     Dosage: 60 MG, ORAAL, 1DD
  7. INSULIN NOS [Concomitant]
     Active Substance: INSULIN NOS
     Dosage: 25-40 IE, PARENTERAAL, 1DD AN
  8. INSULIN GLARGINE [Concomitant]
     Active Substance: INSULIN GLARGINE
     Dosage: 55 IE, SUBCUTAAN, 1DD
  9. MAGNESIUM [Concomitant]
     Active Substance: MAGNESIUM
     Dosage: 1 TABLET, ORAAL, 1DD
  10. METFORMIN HYDROCHLORIDE [Concomitant]
     Active Substance: METFORMIN HYDROCHLORIDE
     Dosage: 1.000 MG, ORAAL, 1DD
  11. OXYCODONE [Concomitant]
     Active Substance: OXYCODONE
  12. PANTOPRAZOLE SODIUM [Concomitant]
     Active Substance: PANTOPRAZOLE SODIUM
     Dosage: 20 MG, ORAAL, 1DD
  13. ACETAMINOPHEN [Concomitant]
     Active Substance: ACETAMINOPHEN
     Dosage: 1.000 MG, ORAAL, 4DD PIJN
  14. SACUBITRIL [Concomitant]
     Active Substance: SACUBITRIL
     Dosage: 1 TABLET, ORAAL, 2DD
  15. SEMAGLUTIDE [Concomitant]
     Active Substance: SEMAGLUTIDE
     Dosage: 1 MG, SUBCUTAAN, 1X PER WEEK ZATERDAG
  16. SPIRONOLACTONE [Concomitant]
     Active Substance: SPIRONOLACTONE
     Dosage: 50 MG, ORAAL, 1DD
  17. Ascorbinezuur [Concomitant]

REACTIONS (1)
  - Extremity necrosis [Recovering/Resolving]
